FAERS Safety Report 25736480 (Version 1)
Quarter: 2025Q3

REPORT INFORMATION
  Report Type: Spontaneous
  Country: US (occurrence: None)
  Receive Date: 20250828
  Receipt Date: 20250828
  Transmission Date: 20251021
  Serious: Yes (Hospitalization)
  Sender: FDA-CTU
  Company Number: None

PATIENT
  Sex: Female

DRUGS (9)
  1. TEZSPIRE [Suspect]
     Active Substance: TEZEPELUMAB-EKKO
     Indication: Product used for unknown indication
     Route: 058
     Dates: start: 20241003
  2. ATORVASTATIN TAB 10MG [Concomitant]
  3. DILTIAZEM CAP 240MG ER [Concomitant]
  4. IPRATROPIUM SPR 0.06% [Concomitant]
  5. PRATROPIUM/ SOL ALBUTER [Concomitant]
  6. KLOR-CON M20 TAB 20MEQ ER [Concomitant]
  7. MONTELUKAST SODIUM [Concomitant]
     Active Substance: MONTELUKAST SODIUM
  8. SPI RONOLACT TAB 25MG [Concomitant]
  9. TORSEMIDE TAB 20MG [Concomitant]

REACTIONS (3)
  - Femur fracture [None]
  - Quality of life decreased [None]
  - Condition aggravated [None]
